FAERS Safety Report 7945774-8 (Version None)
Quarter: 2011Q4

REPORT INFORMATION
  Report Type: 
  Country: None (occurrence: None)
  Receive Date: 20111129
  Receipt Date: 20111117
  Transmission Date: 20120403
  Serious: Yes (Hospitalization)
  Sender: FDA-Public Use
  Company Number: PL-UCBSA-046072

PATIENT
  Age: 66 Year
  Sex: Female
  Weight: 91.6 kg

DRUGS (9)
  1. POLPRAZOL [Concomitant]
     Indication: GASTRIC ULCER
     Route: 048
     Dates: start: 20100329
  2. POLPRIL [Concomitant]
     Indication: HYPERTENSION
     Route: 048
     Dates: start: 20080801
  3. LEVOTHYROXINE SODIUM [Concomitant]
     Indication: HYPOTHYROIDISM
     Route: 048
     Dates: start: 20000501
  4. BISOPROLOL FUMARATE [Concomitant]
     Indication: HYPERTENSION
     Route: 048
     Dates: start: 20100329
  5. METHOTREXATE [Concomitant]
     Indication: PSORIATIC ARTHROPATHY
     Dosage: 15 MG QS
     Route: 048
     Dates: start: 20100621
  6. CERTOLIZUMAB PEGOL [Suspect]
     Indication: PSORIATIC ARTHROPATHY
     Route: 058
     Dates: start: 20110524, end: 20111117
  7. CERTOLIZUMAB PEGOL [Suspect]
     Route: 058
     Dates: start: 20101207, end: 20110524
  8. DICLOFENAC SODIUM [Concomitant]
     Indication: PSORIATIC ARTHROPATHY
     Route: 048
     Dates: start: 20100329
  9. ACIDUM FOLICUM [Concomitant]
     Indication: UNEVALUABLE EVENT
     Dosage: 5 MG QS
     Route: 048
     Dates: start: 20061002

REACTIONS (2)
  - BACK PAIN [None]
  - DYSPNOEA [None]
